FAERS Safety Report 21488528 (Version 1)
Quarter: 2022Q4

REPORT INFORMATION
  Report Type: Spontaneous
  Country: US (occurrence: None)
  Receive Date: 20221020
  Receipt Date: 20221020
  Transmission Date: 20230113
  Serious: Yes (Hospitalization)
  Sender: FDA-Public Use
  Company Number: None

PATIENT
  Sex: Female

DRUGS (1)
  1. ENBREL [Suspect]
     Active Substance: ETANERCEPT
     Indication: Rheumatoid arthritis
     Dosage: 50 MG/ML ?INJECT 50 MG UNDER THE SKIN (SUBCUTANEOUS INJECTION) ONCE A WEEK?
     Route: 058
     Dates: start: 20200515

REACTIONS (1)
  - Intentional dose omission [None]
